FAERS Safety Report 16895341 (Version 3)
Quarter: 2020Q3

REPORT INFORMATION
  Report Type: Spontaneous
  Country: GB (occurrence: GB)
  Receive Date: 20191008
  Receipt Date: 20200928
  Transmission Date: 20201102
  Serious: Yes (Disabling, Other)
  Sender: FDA-Public Use
  Company Number: GB-MYLANLABS-2019M1092748

PATIENT
  Age: 57 Year
  Sex: Female
  Weight: 67 kg

DRUGS (6)
  1. DEPAKOTE [Suspect]
     Active Substance: DIVALPROEX SODIUM
     Dosage: 250 MILLIGRAM
     Route: 048
  2. FEMOSTON CONTI [Concomitant]
     Active Substance: DYDROGESTERONE\ESTRADIOL
     Dosage: UNK
  3. DEPAKOTE [Suspect]
     Active Substance: DIVALPROEX SODIUM
     Indication: EUPHORIC MOOD
     Dosage: 750 MILLIGRAM, QD
     Route: 048
     Dates: start: 20160213
  4. ELLESTE DUET [Concomitant]
     Active Substance: ESTRADIOL\NORETHINDRONE ACETATE
     Indication: HORMONE REPLACEMENT THERAPY
     Dosage: 5 MILLIGRAM, QW
  5. ARIPIPRAZOLE. [Suspect]
     Active Substance: ARIPIPRAZOLE
     Indication: PRODUCT USED FOR UNKNOWN INDICATION
     Dosage: 10 MILLIGRAM, QD (TO REPLACE DEPAKOTE?)
     Route: 048
     Dates: start: 20190329
  6. DEPAKOTE [Suspect]
     Active Substance: DIVALPROEX SODIUM
     Dosage: 1000 MILLIGRAM, QD
     Route: 048
     Dates: start: 20160213

REACTIONS (23)
  - Abnormal weight gain [Unknown]
  - Poor personal hygiene [Unknown]
  - Food craving [Unknown]
  - Muscle spasms [Unknown]
  - Defaecation disorder [Unknown]
  - Headache [Unknown]
  - Sleep disorder [Unknown]
  - Fatigue [Unknown]
  - Gingival disorder [Not Recovered/Not Resolved]
  - Body temperature abnormal [Unknown]
  - Dysphemia [Recovering/Resolving]
  - Loose tooth [Unknown]
  - Feeling abnormal [Unknown]
  - Tooth disorder [Not Recovered/Not Resolved]
  - Withdrawal syndrome [Unknown]
  - Myalgia [Unknown]
  - Lethargy [Unknown]
  - Diarrhoea [Not Recovered/Not Resolved]
  - Vision blurred [Unknown]
  - Abnormal behaviour [Unknown]
  - Pollakiuria [Unknown]
  - Gingival ulceration [Unknown]
  - Disturbance in attention [Not Recovered/Not Resolved]

NARRATIVE: CASE EVENT DATE: 20160218
